FAERS Safety Report 15607340 (Version 3)
Quarter: 2018Q4

REPORT INFORMATION
  Report Type: Spontaneous
  Country: US (occurrence: US)
  Receive Date: 20181112
  Receipt Date: 20181206
  Transmission Date: 20190205
  Serious: Yes (Death, Hospitalization)
  Sender: FDA-Public Use
  Company Number: US-PFIZER INC-2018461603

PATIENT
  Age: 41 Year
  Sex: Female
  Weight: 77 kg

DRUGS (1)
  1. IBRANCE [Suspect]
     Active Substance: PALBOCICLIB
     Indication: BREAST CANCER METASTATIC
     Dosage: 75 MG (ONE CAPSULE DAILY), CYCLIC (D 1-21 Q28 DAYS/ONCE DAILY ON DAYS 1-21 OF 28 DAY CYCLE)
     Route: 048
     Dates: start: 20180814

REACTIONS (3)
  - Neoplasm progression [Unknown]
  - Death [Fatal]
  - Abdominal pain upper [Unknown]

NARRATIVE: CASE EVENT DATE: 2018
